FAERS Safety Report 9535829 (Version 1)
Quarter: 2013Q3

REPORT INFORMATION
  Report Type: Report from Study
  Country: DE (occurrence: DE)
  Receive Date: 20130919
  Receipt Date: 20130919
  Transmission Date: 20140515
  Serious: Yes (Death, Hospitalization)
  Sender: FDA-Public Use
  Company Number: DE-ROCHE-1276618

PATIENT
  Age: 70 Year
  Sex: Male
  Weight: 90 kg

DRUGS (15)
  1. BEVACIZUMAB [Suspect]
     Indication: RECTAL CANCER
     Route: 042
     Dates: start: 20080714, end: 20081020
  2. CAPECITABINE [Suspect]
     Indication: RECTAL CANCER
     Route: 048
  3. DELIX (GERMANY) [Concomitant]
     Indication: HYPERTENSION
     Route: 048
     Dates: end: 20100322
  4. DELIX (GERMANY) [Concomitant]
     Indication: CARDIAC DISORDER
  5. FUROSEMIDE [Concomitant]
     Route: 048
     Dates: end: 20100322
  6. SPIRONOLACTONE [Concomitant]
     Route: 048
     Dates: end: 20100322
  7. HCT BETA [Concomitant]
     Route: 048
     Dates: end: 20100322
  8. NITRENDIPIN [Concomitant]
     Indication: CARDIAC DISORDER
     Route: 048
     Dates: end: 20100322
  9. IBUPROFEN [Concomitant]
     Indication: PAIN
     Route: 048
     Dates: end: 20100322
  10. MCP [Concomitant]
     Indication: NAUSEA
     Route: 048
     Dates: end: 20100322
  11. METOPROLOL AL [Concomitant]
     Indication: HYPERTENSION
     Route: 048
     Dates: start: 20081110, end: 20100322
  12. SEVREDOL [Concomitant]
     Indication: PAIN
     Route: 048
  13. MONICOR [Concomitant]
     Indication: CONSTIPATION
     Route: 048
     Dates: end: 20100322
  14. LOPERAMIDE [Concomitant]
     Indication: DIARRHOEA
     Route: 065
     Dates: end: 20100322
  15. ALLOPURINOL [Concomitant]
     Indication: HYPERURICAEMIA
     Route: 048
     Dates: end: 20100322

REACTIONS (4)
  - Renal failure [Fatal]
  - Pulmonary embolism [Fatal]
  - Urosepsis [Recovered/Resolved]
  - Arthralgia [Unknown]
